FAERS Safety Report 12366712 (Version 1)
Quarter: 2016Q2

REPORT INFORMATION
  Report Type: Spontaneous
  Country: US (occurrence: US)
  Receive Date: 20160513
  Receipt Date: 20160513
  Transmission Date: 20160815
  Serious: No
  Sender: FDA-Public Use
  Company Number: US-TEIKOKU PHARMA USA-TPU2016-00275

PATIENT
  Sex: Female
  Weight: 58.11 kg

DRUGS (2)
  1. LIDOCAINE PATCH [Suspect]
     Active Substance: LIDOCAINE
     Indication: NECK INJURY
     Dosage: APPLY 2 PATCHES TO THE BACK FOR 12 HOURS
     Route: 061
     Dates: start: 2016
  2. LIDOCAINE PATCH [Suspect]
     Active Substance: LIDOCAINE
     Indication: BACK INJURY

REACTIONS (1)
  - Drug administered at inappropriate site [Recovered/Resolved]
